FAERS Safety Report 4607313-9 (Version None)
Quarter: 2005Q1

REPORT INFORMATION
  Report Type: 
  Country: None (occurrence: None)
  Receive Date: 20050311
  Receipt Date: 20050311
  Transmission Date: 20050727
  Serious: Yes (Other)
  Sender: FDA-Public Use
  Company Number: None

PATIENT
  Age: 78 Year
  Sex: Female
  Weight: 64.4108 kg

DRUGS (4)
  1. ZOCOR [Suspect]
     Indication: BLOOD CHOLESTEROL
     Dosage: 40 MG -1- DAILY
     Dates: start: 20030514, end: 20040601
  2. ZOCOR [Suspect]
     Indication: BLOOD CHOLESTEROL
     Dosage: 40 MG -1- DAILY
     Dates: start: 20030501
  3. PRAVACHOL [Suspect]
     Indication: BLOOD CHOLESTEROL
     Dosage: 40 MG -1- DAILY
     Dates: start: 20040801, end: 20041101
  4. LEVOTHYROXINE [Concomitant]

REACTIONS (1)
  - MYALGIA [None]
